FAERS Safety Report 13058316 (Version 1)
Quarter: 2016Q4

REPORT INFORMATION
  Report Type: Spontaneous
  Country: US (occurrence: US)
  Receive Date: 20161223
  Receipt Date: 20161223
  Transmission Date: 20170207
  Serious: No
  Sender: FDA-Public Use
  Company Number: None

PATIENT
  Age: 66 Year
  Sex: Female
  Weight: 72.58 kg

DRUGS (4)
  1. LACTASE ENZYME SUPPLEMENT [Concomitant]
  2. METRONIDAZOLE 500MG TAB 14 [Suspect]
     Active Substance: METRONIDAZOLE
     Indication: PRURITUS
     Dosage: ?          QUANTITY:REL?) I?L;?
     Route: 048
     Dates: start: 20131114, end: 20140310
  3. ALLERGY TABLETS [Concomitant]
  4. ALEDRONATE SODIUM [Concomitant]

REACTIONS (1)
  - Neoplasm malignant [None]

NARRATIVE: CASE EVENT DATE: 20131114
